FAERS Safety Report 19880644 (Version 3)
Quarter: 2021Q4

REPORT INFORMATION
  Report Type: Spontaneous
  Country: DE (occurrence: DE)
  Receive Date: 20210924
  Receipt Date: 20211105
  Transmission Date: 20220303
  Serious: Yes (Other)
  Sender: FDA-Public Use
  Company Number: DE-ROCHE-2782653

PATIENT
  Age: 63 Year
  Sex: Female
  Weight: 107 kg

DRUGS (9)
  1. PACLITAXEL [Suspect]
     Active Substance: PACLITAXEL
     Indication: Intraductal proliferative breast lesion
     Dosage: 12 CYCLES
     Route: 065
     Dates: start: 201901, end: 2019
  2. EPIRUBICIN [Suspect]
     Active Substance: EPIRUBICIN
     Indication: Intraductal proliferative breast lesion
     Dosage: UNK UNK, CYCLE (4 CYCLES)
     Route: 065
     Dates: start: 2019, end: 201907
  3. HERCEPTIN [Suspect]
     Active Substance: TRASTUZUMAB
     Indication: Intraductal proliferative breast lesion
     Dosage: 3 WEEKS, WITH PERJETA, 18 CYCLES IN TOTAL
     Route: 041
     Dates: start: 20190731, end: 20200812
  4. HERCEPTIN [Suspect]
     Active Substance: TRASTUZUMAB
     Indication: Breast cancer
  5. PERJETA [Suspect]
     Active Substance: PERTUZUMAB
     Indication: Intraductal proliferative breast lesion
     Dosage: 3 WEEKS, WITH HERCEPTIN, 18 CYCLES IN TOTAL
     Route: 042
     Dates: start: 20190731, end: 20200812
  6. PERJETA [Suspect]
     Active Substance: PERTUZUMAB
     Indication: Breast cancer
  7. CYCLOPHOSPHAMIDE [Suspect]
     Active Substance: CYCLOPHOSPHAMIDE
     Indication: Intraductal proliferative breast lesion
     Dosage: 4 CYCLES
     Route: 065
     Dates: start: 2019, end: 201907
  8. CORTISONE [Concomitant]
     Active Substance: CORTISONE
     Dosage: UNK
  9. ETHACRIDINE LACTATE [Concomitant]
     Active Substance: ETHACRIDINE LACTATE
     Dosage: UNK

REACTIONS (10)
  - Cardiac failure [Recovering/Resolving]
  - Inflammation [Recovering/Resolving]
  - Nail bed bleeding [Recovering/Resolving]
  - Nail bed inflammation [Recovering/Resolving]
  - Onychoclasis [Recovering/Resolving]
  - Nail disorder [Recovering/Resolving]
  - Nail dystrophy [Recovered/Resolved]
  - Paronychia [Recovered/Resolved]
  - Skin exfoliation [Recovering/Resolving]
  - Infection [Not Recovered/Not Resolved]

NARRATIVE: CASE EVENT DATE: 20200101
